FAERS Safety Report 22980530 (Version 2)
Quarter: 2023Q4

REPORT INFORMATION
  Report Type: Report from Study
  Country: HN (occurrence: None)
  Receive Date: 20230925
  Receipt Date: 20231005
  Transmission Date: 20240110
  Serious: Yes (Life-Threatening, Other)
  Sender: FDA-Public Use
  Company Number: 2023A215840

PATIENT
  Sex: Female

DRUGS (2)
  1. DAPAGLIFLOZIN [Suspect]
     Active Substance: DAPAGLIFLOZIN
     Route: 048
  2. XIGDUO XR [Suspect]
     Active Substance: DAPAGLIFLOZIN PROPANEDIOL\METFORMIN HYDROCHLORIDE
     Dosage: 5MG/1000MG
     Route: 048

REACTIONS (7)
  - Shock hypoglycaemic [Unknown]
  - Tachycardia [Unknown]
  - Vomiting [Unknown]
  - Feeling abnormal [Unknown]
  - Balance disorder [Unknown]
  - Fall [Unknown]
  - Hyperhidrosis [Unknown]
